FAERS Safety Report 13573855 (Version 1)
Quarter: 2017Q2

REPORT INFORMATION
  Report Type: Spontaneous
  Country: PL (occurrence: PL)
  Receive Date: 20170523
  Receipt Date: 20170523
  Transmission Date: 20170830
  Serious: Yes (Other)
  Sender: FDA-Public Use
  Company Number: PL-TEVA-770495ISR

PATIENT
  Age: 44 Year
  Sex: Female

DRUGS (3)
  1. KETOPROFEN. [Concomitant]
     Active Substance: KETOPROFEN
  2. DOXORUBICIN [Suspect]
     Active Substance: DOXORUBICIN
     Indication: THERAPEUTIC EMBOLISATION
  3. LIGNOCAINE [Concomitant]
     Active Substance: LIDOCAINE HYDROCHLORIDE
     Dosage: 2%
     Route: 058

REACTIONS (3)
  - Ecchymosis [Recovered/Resolved]
  - Metastasis [Unknown]
  - Hypersensitivity [Recovered/Resolved]
